FAERS Safety Report 14836064 (Version 1)
Quarter: 2018Q2

REPORT INFORMATION
  Report Type: Spontaneous
  Country: US (occurrence: US)
  Receive Date: 20180413
  Receipt Date: 20180413
  Transmission Date: 20180711
  Serious: Yes (Hospitalization)
  Sender: FDA-Public Use
  Company Number: None

PATIENT
  Sex: Female

DRUGS (10)
  1. HUMIRA [Suspect]
     Active Substance: ADALIMUMAB
     Indication: UVEITIS
     Route: 058
     Dates: start: 20160822
  2. GLIMEPIRIDE. [Concomitant]
     Active Substance: GLIMEPIRIDE
  3. AMLODIPINE [Concomitant]
     Active Substance: AMLODIPINE BESYLATE
  4. CALCIUM GLUC [Concomitant]
  5. CALCIUM +D3 [Concomitant]
     Active Substance: CALCIUM\CHOLECALCIFEROL
  6. VITAMIN D [Concomitant]
     Active Substance: CHOLECALCIFEROL
  7. GLYBURIDE. [Concomitant]
     Active Substance: GLYBURIDE
  8. HYDROCHLOROT [Concomitant]
     Active Substance: HYDROCHLOROTHIAZIDE
  9. ASPIRIN. [Concomitant]
     Active Substance: ASPIRIN
  10. SIMVASTATIN. [Concomitant]
     Active Substance: SIMVASTATIN

REACTIONS (2)
  - Fall [None]
  - Hip fracture [None]
